FAERS Safety Report 7305997-8 (Version None)
Quarter: 2011Q1

REPORT INFORMATION
  Report Type: 
  Country: None (occurrence: None)
  Receive Date: 20110209
  Receipt Date: 20110124
  Transmission Date: 20110831
  Serious: Yes (Other)
  Sender: FDA-Public Use
  Company Number: 2011MA000619

PATIENT
  Age: 47 Year
  Sex: Female

DRUGS (1)
  1. PACLITAXEL [Suspect]
     Indication: OVARIAN CANCER
     Dosage: IV
     Route: 042

REACTIONS (4)
  - PAPILLARY SEROUS ENDOMETRIAL CARCINOMA [None]
  - NEUTROPENIA [None]
  - DRUG HYPERSENSITIVITY [None]
  - DISEASE PROGRESSION [None]
